FAERS Safety Report 13427027 (Version 1)
Quarter: 2017Q2

REPORT INFORMATION
  Report Type: Spontaneous
  Country: US (occurrence: US)
  Receive Date: 20170411
  Receipt Date: 20170411
  Transmission Date: 20170830
  Serious: No
  Sender: FDA-Public Use
  Company Number: US-BAYER-2017-069128

PATIENT
  Age: 53 Year
  Sex: Female
  Weight: 54.88 kg

DRUGS (1)
  1. MIRALAX [Suspect]
     Active Substance: POLYETHYLENE GLYCOL 3350
     Indication: GASTROINTESTINAL DISORDER
     Dosage: UNK 17 GRAMS IN GLASS OF WATER
     Route: 048
     Dates: end: 20170409

REACTIONS (2)
  - Product taste abnormal [None]
  - Drug prescribing error [Unknown]
